FAERS Safety Report 7413719-5 (Version None)
Quarter: 2011Q2

REPORT INFORMATION
  Report Type: 
  Country: None (occurrence: None)
  Receive Date: 20110413
  Receipt Date: 20110404
  Transmission Date: 20111010
  Serious: Yes (Other)
  Sender: FDA-Public Use
  Company Number: FR-PFIZER INC-2011074716

PATIENT
  Age: 30 Year
  Sex: Male

DRUGS (18)
  1. LANTUS [Concomitant]
  2. MAGNE-B6 [Concomitant]
  3. DAFALGAN [Concomitant]
  4. SPASFON [Concomitant]
  5. CREON [Concomitant]
     Dosage: UNK
  6. NEXIUM [Concomitant]
  7. RAPAMUNE [Concomitant]
     Dosage: UNK
  8. CELLCEPT [Concomitant]
     Dosage: 250 MG, 2X/DAY
  9. DELURSAN [Concomitant]
     Dosage: UNK
  10. ATARAX [Concomitant]
     Dosage: 50 MG, 1X/DAY
  11. DIFFU K [Concomitant]
  12. NOVORAPID [Concomitant]
  13. CALCIUM D3 ^STADA^ [Concomitant]
     Dosage: 1 DF, 1X/DAY
  14. BACTRIM [Concomitant]
     Dosage: 1 DF THRICE WEEKLY
  15. VFEND [Suspect]
     Dosage: UNK
     Dates: start: 20101216, end: 20101222
  16. ZITHROMAX [Concomitant]
     Dosage: 250 MG, 1X/DAY
  17. CORTANCYL [Concomitant]
     Dosage: UNK
  18. PROGRAF [Concomitant]
     Dosage: 5 MG, 2X/DAY

REACTIONS (2)
  - HALLUCINATION [None]
  - PERSECUTORY DELUSION [None]
